FAERS Safety Report 9528764 (Version 1)
Quarter: 2013Q2

REPORT INFORMATION
  Report Type: Spontaneous
  Country: US (occurrence: None)
  Receive Date: 20130401
  Receipt Date: 20130401
  Transmission Date: 20140414
  Serious: Yes (Other)
  Sender: FDA-Public Use
  Company Number: PHEH2012US023480

PATIENT
  Sex: Female

DRUGS (1)
  1. EXELON PATCH ( RIVASTIGMINE) TRANS-THERAPEUTIC-SYSTEM [Suspect]
     Route: 062

REACTIONS (4)
  - Cerebrovascular accident [None]
  - Aphasia [None]
  - Dysstasia [None]
  - Gait disturbance [None]
